FAERS Safety Report 6857346-7 (Version None)
Quarter: 2010Q3

REPORT INFORMATION
  Report Type: 
  Country: None (occurrence: None)
  Receive Date: 20100719
  Receipt Date: 20100707
  Transmission Date: 20110219
  Serious: Yes (Other)
  Sender: FDA-Public Use
  Company Number: DE-WATSON-2010-09233

PATIENT
  Age: 31 Year
  Sex: Female

DRUGS (1)
  1. TOPIRAMATE [Suspect]
     Indication: MIGRAINE WITHOUT AURA
     Dosage: 25 MG, UNK

REACTIONS (1)
  - ALICE IN WONDERLAND SYNDROME [None]
